FAERS Safety Report 4975157-4 (Version None)
Quarter: 2006Q2

REPORT INFORMATION
  Report Type: 
  Country: None (occurrence: None)
  Receive Date: 20060414
  Receipt Date: 20060414
  Transmission Date: 20061013
  Serious: Yes (Other)
  Sender: FDA-Public Use
  Company Number: None

PATIENT
  Sex: Female

DRUGS (1)
  1. TIAZAC [Suspect]
     Indication: PULMONARY HYPERTENSION
     Dosage: 800MG ONE D PO
     Route: 048
     Dates: start: 20040324

REACTIONS (4)
  - DIZZINESS [None]
  - DYSPNOEA [None]
  - HYPERHIDROSIS [None]
  - NAUSEA [None]
